FAERS Safety Report 16134599 (Version 6)
Quarter: 2020Q4

REPORT INFORMATION
  Report Type: Spontaneous
  Country: US (occurrence: US)
  Receive Date: 20190329
  Receipt Date: 20201110
  Transmission Date: 20210113
  Serious: Yes (Other)
  Sender: FDA-Public Use
  Company Number: US-PFIZER INC-2019127245

PATIENT
  Age: 68 Year
  Sex: Female
  Weight: 92 kg

DRUGS (4)
  1. LYRICA [Suspect]
     Active Substance: PREGABALIN
     Indication: FIBROMYALGIA
     Dosage: 150 MG, 2X/DAY (ONE IN THE AM AND ONE IN THE PM )
  2. LYRICA [Suspect]
     Active Substance: PREGABALIN
     Dosage: 150 MG, 2X/DAY (TAKE 1 CAPSULE BY MOUTH TWICE A DAY AS NEEDED)
     Route: 048
  3. LYRICA [Suspect]
     Active Substance: PREGABALIN
     Dosage: 50 MG, 2X/DAY
  4. LYRICA [Suspect]
     Active Substance: PREGABALIN
     Dosage: 150 MG, AS NEEDED (TAKE 1 CAPSULE TWICE A DAY AS NEEDED)

REACTIONS (9)
  - Gait inability [Unknown]
  - Body height decreased [Unknown]
  - Pain [Unknown]
  - Cerebrovascular accident [Not Recovered/Not Resolved]
  - Fibromyalgia [Unknown]
  - Visual field defect [Unknown]
  - Fall [Unknown]
  - Spinal fracture [Unknown]
  - Thinking abnormal [Unknown]

NARRATIVE: CASE EVENT DATE: 201804
